FAERS Safety Report 7712591-3 (Version None)
Quarter: 2011Q3

REPORT INFORMATION
  Report Type: 
  Country: None (occurrence: None)
  Receive Date: 20110826
  Receipt Date: 20110816
  Transmission Date: 20111222
  Serious: No
  Sender: FDA-Public Use
  Company Number: JP-JNJFOC-20101201186

PATIENT
  Sex: Male
  Weight: 68 kg

DRUGS (22)
  1. FENTANYL CITRATE [Suspect]
     Indication: PAIN
     Route: 062
     Dates: start: 20110101
  2. MEXITIL [Concomitant]
     Indication: PAIN
     Route: 048
  3. XYLOCAINE [Concomitant]
     Route: 065
     Dates: end: 20100705
  4. NEUROTROPIN [Concomitant]
     Route: 048
  5. FLURBIPROFEN [Concomitant]
     Indication: PAIN
     Route: 042
     Dates: start: 20100531
  6. FLURBIPROFEN [Concomitant]
     Route: 042
     Dates: end: 20100527
  7. NEO VITACAIN [Concomitant]
     Indication: PAIN
     Route: 065
     Dates: start: 20100708
  8. GABAPENTIN [Concomitant]
     Indication: PAIN
     Route: 048
  9. FENTANYL CITRATE [Suspect]
     Route: 062
     Dates: start: 20100419, end: 20101017
  10. ACETAMINOPHEN [Concomitant]
     Indication: PAIN
     Route: 048
  11. FAMOTIDINE [Concomitant]
     Indication: PROPHYLAXIS
     Route: 048
  12. NEUROTROPIN [Concomitant]
     Route: 065
  13. NEUROTROPIN [Concomitant]
     Indication: PAIN
     Route: 048
  14. ROPIVACAINE HYDROCHLORIDE [Concomitant]
     Route: 065
     Dates: end: 20100610
  15. FENTANYL CITRATE [Suspect]
     Route: 062
     Dates: start: 20101018, end: 20110101
  16. ACETAMINOPHEN [Concomitant]
     Route: 048
  17. MEXITIL [Concomitant]
     Route: 065
     Dates: start: 20100531
  18. NEO VITACAIN [Concomitant]
     Route: 065
     Dates: end: 20100705
  19. ROPIVACAINE HYDROCHLORIDE [Concomitant]
     Indication: PAIN
     Route: 065
     Dates: start: 20100628
  20. ETODOLAC [Concomitant]
     Indication: PAIN
     Route: 048
  21. GASMOTIN [Concomitant]
     Indication: PROPHYLAXIS
     Route: 048
  22. XYLOCAINE [Concomitant]
     Indication: PAIN
     Route: 065
     Dates: start: 20100708

REACTIONS (1)
  - DRUG PRESCRIBING ERROR [None]
